FAERS Safety Report 20059270 (Version 8)
Quarter: 2022Q4

REPORT INFORMATION
  Report Type: Report from Study
  Country: US (occurrence: US)
  Receive Date: 20211111
  Receipt Date: 20221110
  Transmission Date: 20230112
  Serious: Yes (Hospitalization)
  Sender: FDA-Public Use
  Company Number: US-SHIRE-US202010101

PATIENT
  Age: 55 Year
  Sex: Female

DRUGS (4)
  1. HUMAN IMMUNOGLOBULIN G\HYALURONIDASE RECOMBINANT HUMAN [Suspect]
     Active Substance: HUMAN IMMUNOGLOBULIN G\HYALURONIDASE RECOMBINANT HUMAN
     Indication: Primary immunodeficiency syndrome
     Dosage: 2.5 GRAM, Q2WEEKS
     Route: 065
  2. HUMAN IMMUNOGLOBULIN G\HYALURONIDASE RECOMBINANT HUMAN [Suspect]
     Active Substance: HUMAN IMMUNOGLOBULIN G\HYALURONIDASE RECOMBINANT HUMAN
     Dosage: 8 GRAM, Q2WEEKS
     Route: 065
  3. HUMAN IMMUNOGLOBULIN G\HYALURONIDASE RECOMBINANT HUMAN [Suspect]
     Active Substance: HUMAN IMMUNOGLOBULIN G\HYALURONIDASE RECOMBINANT HUMAN
     Dosage: UNK, 1/WEEK
     Route: 042
     Dates: start: 20200228
  4. HUMAN IMMUNOGLOBULIN G\HYALURONIDASE RECOMBINANT HUMAN [Suspect]
     Active Substance: HUMAN IMMUNOGLOBULIN G\HYALURONIDASE RECOMBINANT HUMAN
     Dosage: 10 GRAM, 1/WEEK
     Route: 065

REACTIONS (28)
  - Influenza [Unknown]
  - Arthritis [Unknown]
  - Bronchitis [Not Recovered/Not Resolved]
  - Fall [Unknown]
  - Concussion [Unknown]
  - Weight decreased [Unknown]
  - Energy increased [Recovered/Resolved]
  - Sinusitis [Recovering/Resolving]
  - Fungal infection [Unknown]
  - Skin disorder [Unknown]
  - Fatigue [Recovered/Resolved]
  - Rash [Recovering/Resolving]
  - Migraine [Unknown]
  - Headache [Unknown]
  - Illness [Unknown]
  - Feeling abnormal [Unknown]
  - Cough [Unknown]
  - Candida infection [Unknown]
  - Ehlers-Danlos syndrome [Unknown]
  - Infusion related reaction [Unknown]
  - Immunoglobulins decreased [Unknown]
  - Blood glucose fluctuation [Unknown]
  - Hypersomnia [Unknown]
  - Gastroenteritis viral [Recovered/Resolved]
  - Sensitivity to weather change [Unknown]
  - Viral infection [Recovering/Resolving]
  - Incorrect route of product administration [Unknown]
  - Inappropriate schedule of product administration [Unknown]

NARRATIVE: CASE EVENT DATE: 20200228
